FAERS Safety Report 5478241-4 (Version None)
Quarter: 2007Q4

REPORT INFORMATION
  Report Type: 
  Country: None (occurrence: None)
  Receive Date: 20071005
  Receipt Date: 20070928
  Transmission Date: 20080405
  Serious: Yes (Hospitalization)
  Sender: FDA-Public Use
  Company Number: BR-AVENTIS-200719052GDDC

PATIENT
  Age: 72 Year
  Sex: Male

DRUGS (7)
  1. LANTUS [Suspect]
     Route: 058
     Dates: start: 20040101
  2. LANTUS [Suspect]
     Route: 058
     Dates: start: 20070801, end: 20070828
  3. LANTUS [Suspect]
     Route: 058
     Dates: start: 20070929
  4. OPTIPEN (INSULIN PUMP) [Suspect]
     Dates: start: 20040101
  5. GLUCOVANCE                         /01503701/ [Concomitant]
     Dosage: DOSE: 2.5/500
     Route: 048
  6. CEBRALAT [Concomitant]
     Route: 048
     Dates: start: 20060101
  7. AMARYL [Concomitant]
     Dosage: DOSE QUANTITY: 1
     Dates: start: 20040101

REACTIONS (3)
  - DIABETIC HYPERGLYCAEMIC COMA [None]
  - HYPERGLYCAEMIA [None]
  - MEDICATION ERROR [None]
